FAERS Safety Report 7203506-5 (Version None)
Quarter: 2010Q4

REPORT INFORMATION
  Report Type: 
  Country: None (occurrence: None)
  Receive Date: 20101220
  Receipt Date: 20101207
  Transmission Date: 20110411
  Serious: Yes (Hospitalization)
  Sender: FDA-Public Use
  Company Number: DSU-2010-06799

PATIENT
  Age: 56 Year
  Sex: Female
  Weight: 79.2 kg

DRUGS (8)
  1. BENICAR [Suspect]
     Indication: PRODUCT USED FOR UNKNOWN INDICATION
     Dosage: 40 MG (40 MG, 1 IN1 D) PER ORAL
     Route: 048
  2. VELCADE [Suspect]
     Indication: MULTIPLE MYELOMA
     Dosage: 1.3 MG/M2, CYCLIC, INTRAVENOUS (NOT OTHERWISE SPECIFIED)
     Route: 042
     Dates: start: 20100507, end: 20101112
  3. DEXAMETHASONE TAB [Suspect]
     Indication: MULTIPLE MYELOMA
     Dosage: 20 MG, CYCLIC PER ORAL
     Route: 048
     Dates: start: 20100507, end: 20101112
  4. LENALIDOMIDE [Suspect]
     Indication: MULTIPLE MYELOMA
     Dosage: 25 MG, CYCLIC, PER ORAL
     Route: 048
     Dates: start: 20100507, end: 20101115
  5. AMIODARONE (TABLET) [Suspect]
     Indication: PRODUCT USED FOR UNKNOWN INDICATION
     Dosage: 200 MG (200 MG, QD) PER ORAL
     Route: 048
  6. BYSTOLIC [Suspect]
     Indication: PRODUCT USED FOR UNKNOWN INDICATION
     Dosage: 10 MG (10 MG, QD) PER ORAL
     Route: 048
  7. FLUDROCORTISONE [Suspect]
     Indication: PRODUCT USED FOR UNKNOWN INDICATION
  8. ASPIRIN [Concomitant]

REACTIONS (6)
  - DEHYDRATION [None]
  - GASTROINTESTINAL HAEMORRHAGE [None]
  - HYPERTENSION [None]
  - HYPOTENSION [None]
  - MUSCULAR WEAKNESS [None]
  - PLATELET COUNT DECREASED [None]
